FAERS Safety Report 6808542-6 (Version None)
Quarter: 2010Q2

REPORT INFORMATION
  Report Type: 
  Country: None (occurrence: None)
  Receive Date: 20100629
  Receipt Date: 20090806
  Transmission Date: 20101027
  Serious: No
  Sender: FDA-Public Use
  Company Number: US-PFIZER INC-2009221980

PATIENT
  Sex: Male
  Weight: 88.435 kg

DRUGS (5)
  1. ARTHROTEC [Suspect]
     Indication: SURGERY
     Dosage: UNK
     Route: 048
     Dates: start: 20040101
  2. ARTHROTEC [Suspect]
     Indication: INTERVERTEBRAL DISC PROTRUSION
  3. ARTHROTEC [Suspect]
     Indication: ARTHRITIS
  4. SITAGLIPTIN [Concomitant]
     Dosage: UNK
  5. METFORMIN HYDROCHLORIDE [Concomitant]
     Dosage: UNK

REACTIONS (4)
  - ABDOMINAL DISCOMFORT [None]
  - ABDOMINAL PAIN UPPER [None]
  - DIARRHOEA [None]
  - EXPIRED DRUG ADMINISTERED [None]
